FAERS Safety Report 11427235 (Version 3)
Quarter: 2019Q1

REPORT INFORMATION
  Report Type: Report from Study
  Country: US (occurrence: US)
  Receive Date: 20150827
  Receipt Date: 20190110
  Transmission Date: 20190417
  Serious: Yes (Hospitalization, Other)
  Sender: FDA-Public Use
  Company Number: US-SA-2014SA110388

PATIENT
  Age: 28 Year
  Sex: Female

DRUGS (4)
  1. AGALSIDASE BETA [Suspect]
     Active Substance: AGALSIDASE BETA
     Indication: FABRY^S DISEASE
     Dosage: 55 MG, Q2
     Route: 041
     Dates: start: 20140811
  2. AGALSIDASE BETA [Suspect]
     Active Substance: AGALSIDASE BETA
     Dosage: 70 MG,QOW
     Route: 041
     Dates: start: 20150503
  3. AGALSIDASE BETA [Suspect]
     Active Substance: AGALSIDASE BETA
     Dosage: 70 MG,QOW
     Route: 041
     Dates: start: 20090428
  4. AGALSIDASE BETA [Suspect]
     Active Substance: AGALSIDASE BETA
     Dosage: 70 MG,QOW
     Route: 041
     Dates: start: 20140810

REACTIONS (14)
  - Impaired gastric emptying [Unknown]
  - Anti-thyroid antibody positive [Unknown]
  - Uterine disorder [Recovering/Resolving]
  - Migraine [Recovered/Resolved]
  - Food allergy [Not Recovered/Not Resolved]
  - Pre-eclampsia [Recovered/Resolved]
  - Ill-defined disorder [Unknown]
  - Influenza [Recovered/Resolved]
  - Gastrointestinal disorder [Not Recovered/Not Resolved]
  - Blood pressure abnormal [Not Recovered/Not Resolved]
  - Uterine contractions during pregnancy [Not Recovered/Not Resolved]
  - Catheter removal [Unknown]
  - Exposure during pregnancy [Unknown]
  - Autoimmune thyroiditis [Not Recovered/Not Resolved]

NARRATIVE: CASE EVENT DATE: 201408
